FAERS Safety Report 4521113-X (Version None)
Quarter: 2004Q4

REPORT INFORMATION
  Report Type: 
  Country: None (occurrence: None)
  Receive Date: 20041208
  Receipt Date: 20010410
  Transmission Date: 20050328
  Serious: Yes (Life-Threatening, Hospitalization)
  Sender: FDA-Public Use
  Company Number: AT-ROCHE-258377

PATIENT
  Age: 52 Year
  Sex: Male
  Weight: 83 kg

DRUGS (9)
  1. PEG-INTERFERON ALFA 2A (RO 25-8310) [Suspect]
     Route: 058
     Dates: start: 20010115, end: 20010315
  2. RIBAVIRIN [Suspect]
     Route: 048
     Dates: start: 20010115, end: 20010315
  3. PREDNISOLONE [Suspect]
     Route: 065
     Dates: start: 20001017, end: 20001112
  4. PREDNISOLONE [Suspect]
     Route: 065
     Dates: start: 20001113, end: 20010401
  5. PREDNISOLONE [Suspect]
     Route: 065
     Dates: start: 20010402, end: 20010601
  6. PREDNISOLONE [Suspect]
     Route: 065
     Dates: start: 20010602
  7. CYCLOSPORINE [Suspect]
     Route: 065
     Dates: start: 20001017, end: 20001112
  8. CYCLOSPORINE [Suspect]
     Route: 065
     Dates: start: 20001113, end: 20001227
  9. CYCLOSPORINE [Suspect]
     Route: 065
     Dates: start: 20001228, end: 20010330

REACTIONS (3)
  - DISEASE RECURRENCE [None]
  - HEPATITIS C [None]
  - LIVER TRANSPLANT REJECTION [None]
